FAERS Safety Report 11905426 (Version 2)
Quarter: 2016Q1

REPORT INFORMATION
  Report Type: Spontaneous
  Country: US (occurrence: US)
  Receive Date: 20160109
  Receipt Date: 20160322
  Transmission Date: 20160526
  Serious: Yes (Disabling)
  Sender: FDA-Public Use
  Company Number: US-JNJFOC-20151217109

PATIENT
  Weight: 116.58 kg

DRUGS (3)
  1. ABILIFY MAINTENA [Suspect]
     Active Substance: ARIPIPRAZOLE
     Indication: PRODUCT USED FOR UNKNOWN INDICATION
     Route: 030
     Dates: start: 20150106
  2. RISPERDAL CONSTA [Suspect]
     Active Substance: RISPERIDONE
     Indication: SCHIZOPHRENIA
     Route: 030
  3. ABILIFY MAINTENA [Suspect]
     Active Substance: ARIPIPRAZOLE
     Indication: PRODUCT USED FOR UNKNOWN INDICATION
     Route: 030

REACTIONS (7)
  - Tremor [Not Recovered/Not Resolved]
  - Off label use [Unknown]
  - Mania [Unknown]
  - Underdose [Recovered/Resolved]
  - Emotional disorder [Unknown]
  - Inappropriate schedule of drug administration [Unknown]
  - Syringe issue [Unknown]

NARRATIVE: CASE EVENT DATE: 2015
